FAERS Safety Report 7588402-6 (Version None)
Quarter: 2011Q3

REPORT INFORMATION
  Report Type: 
  Country: None (occurrence: None)
  Receive Date: 20110705
  Receipt Date: 20110620
  Transmission Date: 20111222
  Serious: Yes (Other)
  Sender: FDA-Public Use
  Company Number: RU-RANBAXY-2010R3-38457

PATIENT

DRUGS (2)
  1. MELOXICAM [Concomitant]
     Indication: OSTEOCHONDROSIS
     Dosage: UNK
     Route: 065
     Dates: start: 20100920, end: 20100922
  2. SERTRALINE HYDROCHLORIDE [Suspect]
     Indication: AUTONOMIC NERVOUS SYSTEM IMBALANCE
     Dosage: 50 MG, QD
     Route: 048
     Dates: start: 20100920, end: 20100922

REACTIONS (4)
  - VOMITING [None]
  - PANCREATITIS [None]
  - NAUSEA [None]
  - DIARRHOEA [None]
